FAERS Safety Report 15348159 (Version 1)
Quarter: 2018Q3

REPORT INFORMATION
  Report Type: Spontaneous
  Country: FR (occurrence: FR)
  Receive Date: 20180904
  Receipt Date: 20180904
  Transmission Date: 20181010
  Serious: Yes (Hospitalization)
  Sender: FDA-Public Use
  Company Number: FR-BAUSCH-BL-2018-024355

PATIENT
  Age: 52 Year
  Sex: Female
  Weight: 102 kg

DRUGS (8)
  1. PIPAMPERONE [Suspect]
     Active Substance: PIPAMPERONE
     Indication: POISONING DELIBERATE
     Route: 048
     Dates: start: 20180730, end: 20180730
  2. OXYCODONE [Suspect]
     Active Substance: OXYCODONE
     Indication: POISONING DELIBERATE
     Route: 048
     Dates: start: 20180730, end: 20180730
  3. OLANZAPINE. [Suspect]
     Active Substance: OLANZAPINE
     Indication: POISONING DELIBERATE
     Route: 048
  4. CODEINE [Suspect]
     Active Substance: CODEINE
     Indication: POISONING DELIBERATE
     Route: 048
     Dates: start: 20180730, end: 20180730
  5. PAROXETINE. [Suspect]
     Active Substance: PAROXETINE
     Indication: POISONING DELIBERATE
     Route: 048
  6. RISPERDAL CONSTA [Suspect]
     Active Substance: RISPERIDONE
     Indication: POISONING DELIBERATE
     Route: 030
  7. THERALENE [Suspect]
     Active Substance: TRIMEPRAZINE
     Indication: POISONING DELIBERATE
     Route: 048
  8. LORAZEPAM. [Suspect]
     Active Substance: LORAZEPAM
     Indication: POISONING DELIBERATE
     Route: 048

REACTIONS (1)
  - Altered state of consciousness [Recovered/Resolved]

NARRATIVE: CASE EVENT DATE: 20180730
